FAERS Safety Report 20354323 (Version 1)
Quarter: 2022Q1

REPORT INFORMATION
  Report Type: Spontaneous
  Country: US (occurrence: US)
  Receive Date: 20220120
  Receipt Date: 20220120
  Transmission Date: 20220423
  Serious: No
  Sender: FDA-Public Use
  Company Number: US-GLAXOSMITHKLINE-US2022009166

PATIENT
  Age: 57 Year
  Sex: Male

DRUGS (1)
  1. LAMICTAL XR [Suspect]
     Active Substance: LAMOTRIGINE
     Indication: Product used for unknown indication
     Dosage: UNK

REACTIONS (1)
  - Intentional dose omission [Recovered/Resolved]

NARRATIVE: CASE EVENT DATE: 20220117
